FAERS Safety Report 8093272-6 (Version None)
Quarter: 2012Q1

REPORT INFORMATION
  Report Type: 
  Country: None (occurrence: None)
  Receive Date: 20120128
  Receipt Date: 20110906
  Transmission Date: 20120608
  Serious: No
  Sender: FDA-Public Use
  Company Number: US-ABBOTT-11P-163-0733655-00

PATIENT
  Age: 38 Year
  Sex: Female

DRUGS (12)
  1. CALCIUM [Concomitant]
     Indication: MINERAL SUPPLEMENTATION
  2. FLUOXETINE [Concomitant]
     Indication: DEPRESSION
  3. PRILOSEC [Concomitant]
     Indication: GASTROOESOPHAGEAL REFLUX DISEASE
     Dosage: 20 MG DAILY
  4. ZINC SULFATE [Concomitant]
     Indication: MINERAL SUPPLEMENTATION
  5. ASACOL [Concomitant]
     Indication: CROHN'S DISEASE
  6. MULTI-VITAMINS [Concomitant]
     Indication: VITAMIN SUPPLEMENTATION
  7. IMURAN [Concomitant]
     Indication: CROHN'S DISEASE
     Dosage: 1 TAB IN AM AND 1 TAB IN PM
  8. FLUOXETINE [Concomitant]
     Indication: ANXIETY
     Dosage: 20 MG DAILY
  9. MAGNESIUM [Concomitant]
     Indication: MINERAL SUPPLEMENTATION
  10. SUPER B COMPLEX [Concomitant]
     Indication: VITAMIN SUPPLEMENTATION
  11. VITAMIN D [Concomitant]
     Indication: VITAMIN SUPPLEMENTATION
  12. HUMIRA [Suspect]
     Indication: CROHN'S DISEASE
     Dates: start: 20100401

REACTIONS (4)
  - INJECTION SITE MASS [None]
  - DEVICE MALFUNCTION [None]
  - INJECTION SITE PAIN [None]
  - INJECTION SITE ERYTHEMA [None]
